FAERS Safety Report 5776551-4 (Version None)
Quarter: 2008Q2

REPORT INFORMATION
  Report Type: 
  Country: None (occurrence: None)
  Receive Date: 20080616
  Receipt Date: 20080611
  Transmission Date: 20081010
  Serious: Yes (Death, Hospitalization)
  Sender: FDA-Public Use
  Company Number: 2008SP009837

PATIENT
  Age: 39 Year
  Sex: Male

DRUGS (8)
  1. PEG-INTRON [Suspect]
     Indication: HEPATITIS C
     Dosage: 100 MCG;QW;SC
     Route: 058
     Dates: start: 20080424, end: 20080508
  2. RAMIPRIL [Concomitant]
  3. ERYTHROPOEITIN [Concomitant]
  4. METOPROLOL [Concomitant]
  5. SEVELAMER [Concomitant]
  6. SODIUM POLYSTYRENE [Concomitant]
  7. SULFONATE [Concomitant]
  8. BARNIDIPINE [Concomitant]

REACTIONS (25)
  - ACIDOSIS [None]
  - ANAEMIA [None]
  - ASPARTATE AMINOTRANSFERASE INCREASED [None]
  - ASTHENIA [None]
  - BLOOD ALKALINE PHOSPHATASE INCREASED [None]
  - BLOOD BILIRUBIN INCREASED [None]
  - BLOOD CREATININE INCREASED [None]
  - BLOOD GLUCOSE DECREASED [None]
  - DIPLOPIA [None]
  - FIBRIN D DIMER INCREASED [None]
  - GAMMA-GLUTAMYLTRANSFERASE INCREASED [None]
  - HAEMODIALYSIS [None]
  - HAEMOGLOBIN DECREASED [None]
  - HYPOGLYCAEMIA [None]
  - HYPOTENSION [None]
  - LEFT VENTRICULAR HYPERTROPHY [None]
  - PERICARDIAL EFFUSION [None]
  - PLATELET COUNT DECREASED [None]
  - PROTHROMBIN TIME PROLONGED [None]
  - RED BLOOD CELL COUNT DECREASED [None]
  - RENAL COLIC [None]
  - RHABDOMYOLYSIS [None]
  - THROMBIN-ANTITHROMBIN III COMPLEX DECREASED [None]
  - VISUAL DISTURBANCE [None]
  - WHITE BLOOD CELL COUNT DECREASED [None]
